FAERS Safety Report 24650348 (Version 1)
Quarter: 2024Q4

REPORT INFORMATION
  Report Type: Spontaneous
  Country: US (occurrence: US)
  Receive Date: 20241122
  Receipt Date: 20241122
  Transmission Date: 20250115
  Serious: No
  Sender: ELI LILLY AND COMPANY
  Company Number: US-ELI_LILLY_AND_COMPANY-US202410005487

PATIENT
  Age: 53 Year
  Sex: Female

DRUGS (9)
  1. CYMBALTA [Suspect]
     Active Substance: DULOXETINE HYDROCHLORIDE
     Indication: Pain in extremity
     Dosage: UNK, UNKNOWN
     Route: 065
  2. REMODULIN [Suspect]
     Active Substance: TREPROSTINIL
     Indication: Pulmonary arterial hypertension
     Dosage: 60.9NG/KG/MIN (STRENGTH:10MG/ML), CONTINUES
     Route: 058
     Dates: start: 202408
  3. REMODULIN [Suspect]
     Active Substance: TREPROSTINIL
     Dosage: 0.0819 UG/KG (PUMP RATE OF 39 MCL/HR)
     Route: 058
  4. REMODULIN [Suspect]
     Active Substance: TREPROSTINIL
     Dosage: 81.9 NG/KG/MIN (39 MCL/HR)
     Route: 058
     Dates: start: 202409
  5. REMODULIN [Suspect]
     Active Substance: TREPROSTINIL
     Dosage: 81.9 NG/KG/MIN
     Route: 058
  6. REMODULIN [Suspect]
     Active Substance: TREPROSTINIL
     Dosage: 60.9 NG/KG/MIN (29 UL/HR)
     Route: 058
  7. REMODULIN [Suspect]
     Active Substance: TREPROSTINIL
     Dosage: 0.06087 UG/KG
     Route: 058
  8. GABAPENTIN [Suspect]
     Active Substance: GABAPENTIN
     Indication: Pain in extremity
     Dosage: UNK, UNKNOWN
     Route: 065
  9. MACITENTAN\TADALAFIL [Concomitant]
     Active Substance: MACITENTAN\TADALAFIL
     Indication: Product used for unknown indication
     Dosage: UNK UNK, UNKNOWN
     Route: 065

REACTIONS (8)
  - Dyspnoea [Unknown]
  - Skin striae [Unknown]
  - Hernia [Unknown]
  - Vision blurred [Unknown]
  - Pain in extremity [Recovering/Resolving]
  - Diarrhoea [Recovered/Resolved]
  - Musculoskeletal stiffness [Unknown]
  - Therapy partial responder [Unknown]

NARRATIVE: CASE EVENT DATE: 20240101
